FAERS Safety Report 7969824-8 (Version None)
Quarter: 2011Q4

REPORT INFORMATION
  Report Type: 
  Country: None (occurrence: None)
  Receive Date: 20111212
  Receipt Date: 20111202
  Transmission Date: 20120403
  Serious: Yes (Other)
  Sender: FDA-Public Use
  Company Number: FR-PFIZER INC-2011295511

PATIENT
  Sex: Male

DRUGS (2)
  1. BENEFIX [Suspect]
     Dosage: 75 IU/KG, AS NEEDED
  2. BENEFIX [Suspect]
     Dosage: 100 IU/KG, UNK

REACTIONS (3)
  - CHILLS [None]
  - FATIGUE [None]
  - RASH [None]
